FAERS Safety Report 7601601-X (Version None)
Quarter: 2011Q3

REPORT INFORMATION
  Report Type: 
  Country: None (occurrence: None)
  Receive Date: 20110711
  Receipt Date: 20110629
  Transmission Date: 20111222
  Serious: Yes (Other)
  Sender: FDA-Public Use
  Company Number: PHHY2011CA44111

PATIENT
  Sex: Female

DRUGS (2)
  1. RADIATION THERAPY [Concomitant]
  2. ZOMETA [Suspect]
     Indication: RENAL CELL CARCINOMA
     Dosage: 4 MG, EVERY 3 WEEKS
     Route: 042
     Dates: start: 20110427

REACTIONS (7)
  - DYSPHAGIA [None]
  - ASTHENIA [None]
  - MALAISE [None]
  - APHAGIA [None]
  - DRY MOUTH [None]
  - GENERAL PHYSICAL HEALTH DETERIORATION [None]
  - VOMITING [None]
